FAERS Safety Report 8479178-9 (Version None)
Quarter: 2012Q2

REPORT INFORMATION
  Report Type: 
  Country: None (occurrence: None)
  Receive Date: 20120629
  Receipt Date: 20120621
  Transmission Date: 20120825
  Serious: Yes (Other)
  Sender: FDA-Public Use
  Company Number: JP-JNJFOC-20120516280

PATIENT
  Sex: Male
  Weight: 64 kg

DRUGS (10)
  1. REMICADE [Suspect]
     Dosage: 5TH DOSE OF INFLIXIMAB
     Route: 042
     Dates: start: 20110906
  2. METHOTREXATE [Concomitant]
     Route: 065
  3. REMICADE [Suspect]
     Route: 042
     Dates: start: 20110422
  4. REMICADE [Suspect]
     Route: 042
     Dates: start: 20110408
  5. COLCHICINE [Concomitant]
     Indication: BEHCET'S SYNDROME
     Dosage: 1 DF  0.5 DF
     Route: 048
     Dates: start: 20110322
  6. PYDOXAL [Concomitant]
     Indication: PROPHYLAXIS
     Dosage: 20 DF20 DF
     Route: 048
     Dates: start: 20110324
  7. REMICADE [Suspect]
     Route: 042
     Dates: start: 20110520
  8. REMICADE [Suspect]
     Indication: BEHCET'S SYNDROME
     Route: 042
     Dates: start: 20110712
  9. REMICADE [Suspect]
     Route: 042
     Dates: start: 20111101
  10. ISONIAZID [Concomitant]
     Indication: PROPHYLAXIS
     Dosage: 300 DF  300 DF
     Route: 048
     Dates: start: 20110324

REACTIONS (5)
  - SKIN EXFOLIATION [None]
  - ERYTHEMA [None]
  - PUSTULAR PSORIASIS [None]
  - PARADOXICAL DRUG REACTION [None]
  - RASH PUSTULAR [None]
